FAERS Safety Report 12176990 (Version 1)
Quarter: 2016Q1

REPORT INFORMATION
  Report Type: Spontaneous
  Country: DE (occurrence: DE)
  Receive Date: 20160314
  Receipt Date: 20160314
  Transmission Date: 20160526
  Serious: Yes (Hospitalization)
  Sender: FDA-Public Use
  Company Number: PHHY2016DE030687

PATIENT
  Sex: Male

DRUGS (1)
  1. GILENYA [Suspect]
     Active Substance: FINGOLIMOD HYDROCHLORIDE
     Indication: PRODUCT USED FOR UNKNOWN INDICATION
     Dosage: 0.5 MG, UNK
     Route: 065
     Dates: start: 20160225

REACTIONS (7)
  - Fall [Unknown]
  - Gait disturbance [Unknown]
  - Hypoaesthesia [Unknown]
  - Dysgeusia [Unknown]
  - Muscle spasms [Unknown]
  - Fatigue [Unknown]
  - Headache [Unknown]
